FAERS Safety Report 8186575-8 (Version None)
Quarter: 2012Q1

REPORT INFORMATION
  Report Type: 
  Country: None (occurrence: None)
  Receive Date: 20120306
  Receipt Date: 20120221
  Transmission Date: 20120608
  Serious: Yes (Other)
  Sender: FDA-Public Use
  Company Number: US-RB-035066-12

PATIENT
  Age: 65 Year
  Sex: Female

DRUGS (2)
  1. SCALPICIN MAXIMUM STRENGTH [Suspect]
     Indication: PRURITUS
     Route: 061
  2. ACETAMINOPHEN [Concomitant]
     Indication: PRODUCT USED FOR UNKNOWN INDICATION

REACTIONS (9)
  - BALANCE DISORDER [None]
  - EPISTAXIS [None]
  - EAR PAIN [None]
  - BURNING SENSATION [None]
  - ALOPECIA [None]
  - HEADACHE [None]
  - SWELLING [None]
  - ERYTHEMA [None]
  - FLUSHING [None]
